FAERS Safety Report 25422633 (Version 2)
Quarter: 2025Q2

REPORT INFORMATION
  Report Type: Spontaneous
  Country: US (occurrence: US)
  Receive Date: 20250611
  Receipt Date: 20250619
  Transmission Date: 20250717
  Serious: Yes (Hospitalization)
  Sender: MERCK SHARP & DOHME LLC
  Company Number: US-009507513-2292718

PATIENT
  Age: 39 Year
  Sex: Female

DRUGS (5)
  1. KEYTRUDA [Suspect]
     Active Substance: PEMBROLIZUMAB
     Indication: Endometrial cancer
     Dosage: 200 MG EVERY 21 DAYS
     Route: 042
     Dates: start: 20250509, end: 20250509
  2. Carboplatin/Paxataxel [Concomitant]
     Indication: Endometrial cancer
     Route: 042
     Dates: start: 20250509, end: 20250509
  3. Carboplatin/Paxataxel [Concomitant]
     Indication: Endometrial cancer
     Route: 042
     Dates: start: 20250509, end: 20250509
  4. CEPHALEXIN [Suspect]
     Active Substance: CEPHALEXIN
     Indication: Rash
     Route: 048
     Dates: start: 20250506, end: 20250514
  5. LEVAQUIN [Suspect]
     Active Substance: LEVOFLOXACIN
     Indication: Pyrexia
     Route: 048
     Dates: start: 20250516, end: 20250516

REACTIONS (2)
  - Stevens-Johnson syndrome [Recovering/Resolving]
  - Rash [Unknown]

NARRATIVE: CASE EVENT DATE: 20250516
